FAERS Safety Report 6245882-6 (Version None)
Quarter: 2009Q2

REPORT INFORMATION
  Report Type: 
  Country: None (occurrence: None)
  Receive Date: 20090626
  Receipt Date: 20071009
  Transmission Date: 20091009
  Serious: Yes (Hospitalization, Other)
  Sender: FDA-Public Use
  Company Number: US-ASTRAZENECA-2006UW22253

PATIENT
  Age: 41 Year
  Sex: Female
  Weight: 230 kg

DRUGS (26)
  1. SEROQUEL [Suspect]
     Indication: BIPOLAR DISORDER
     Route: 048
     Dates: start: 19980101, end: 20000101
  2. SEROQUEL [Suspect]
     Indication: DEPRESSION
     Route: 048
     Dates: start: 19980101, end: 20000101
  3. SEROQUEL [Suspect]
     Indication: ANXIETY
     Route: 048
     Dates: start: 19980101, end: 20000101
  4. SEROQUEL [Suspect]
     Indication: INSOMNIA
     Route: 048
     Dates: start: 19980101, end: 20000101
  5. SEROQUEL [Suspect]
     Dosage: 25 MG - 100 MG
     Route: 048
     Dates: start: 20030224
  6. SEROQUEL [Suspect]
     Dosage: 25 MG - 100 MG
     Route: 048
     Dates: start: 20030224
  7. SEROQUEL [Suspect]
     Dosage: 25 MG - 100 MG
     Route: 048
     Dates: start: 20030224
  8. SEROQUEL [Suspect]
     Dosage: 25 MG - 100 MG
     Route: 048
     Dates: start: 20030224
  9. RISPERDAL [Concomitant]
  10. ZYPREXA [Concomitant]
  11. ZOLOFT [Concomitant]
     Dosage: 25 MG - 50 MG
     Dates: start: 20040224
  12. MAXZIDE [Concomitant]
     Dates: start: 20030220
  13. PREMARIN [Concomitant]
     Dates: start: 20030220
  14. EFFEXOR [Concomitant]
     Dates: start: 20041013
  15. CATAPRES [Concomitant]
     Dates: start: 20041013
  16. AMITRIPTYLINE HCL [Concomitant]
     Dates: start: 20041013
  17. ATENOLOL [Concomitant]
     Dosage: 100 MG - 450 MG
     Dates: start: 20040331
  18. BENICAR [Concomitant]
     Dates: start: 20040404
  19. SYNTHROID [Concomitant]
     Dates: start: 20040714
  20. PROTONIX [Concomitant]
     Dates: start: 20040714
  21. ATACAND [Concomitant]
     Dates: start: 20041105
  22. HYDROXYZINE [Concomitant]
     Dates: start: 20041105
  23. ZOFRAN [Concomitant]
     Dates: start: 20050824
  24. NORVASC [Concomitant]
     Dates: start: 20050921
  25. WELLBUTRIN SR [Concomitant]
     Dates: start: 20051104
  26. NASONEX [Concomitant]

REACTIONS (2)
  - PANCREATITIS [None]
  - PANCREATITIS CHRONIC [None]
